FAERS Safety Report 7404792-9 (Version None)
Quarter: 2011Q2

REPORT INFORMATION
  Report Type: 
  Country: None (occurrence: None)
  Receive Date: 20110411
  Receipt Date: 20101004
  Transmission Date: 20111010
  Serious: Yes (Hospitalization)
  Sender: FDA-Public Use
  Company Number: US-BAYER-201010369NA

PATIENT
  Age: 33 Year
  Sex: Female
  Weight: 111.11 kg

DRUGS (9)
  1. KETOROLAC [Concomitant]
     Dates: start: 20071201
  2. ZOLOFT [Concomitant]
     Indication: ANXIETY
     Dates: start: 20060101, end: 20100501
  3. MORPHINE [Concomitant]
  4. CLONAZEPAM [Concomitant]
     Indication: ANXIETY
     Dates: start: 20070301, end: 20090601
  5. DIET FORMULATIONS FOR TREATMENT OF OBESITY [Concomitant]
     Indication: OBESITY
  6. PERCOCET [Concomitant]
  7. THEO-DUR [Concomitant]
  8. ANTICONVULSIVE [Concomitant]
  9. YAZ [Suspect]
     Indication: PRODUCT USED FOR UNKNOWN INDICATION
     Route: 048
     Dates: start: 20071101, end: 20071216

REACTIONS (11)
  - ANXIETY [None]
  - VENOUS OCCLUSION [None]
  - DYSPNOEA [None]
  - PAIN IN EXTREMITY [None]
  - FEAR [None]
  - GAIT DISTURBANCE [None]
  - DEEP VEIN THROMBOSIS [None]
  - OEDEMA PERIPHERAL [None]
  - PULMONARY EMBOLISM [None]
  - CHEST PAIN [None]
  - MOBILITY DECREASED [None]
